FAERS Safety Report 13433727 (Version 1)
Quarter: 2017Q2

REPORT INFORMATION
  Report Type: Report from Study
  Country: DE (occurrence: DE)
  Receive Date: 20170412
  Receipt Date: 20170412
  Transmission Date: 20170830
  Serious: Yes (Death, Hospitalization, Other)
  Sender: FDA-Public Use
  Company Number: DE-CELGENEUS-DEU-20170400234

PATIENT

DRUGS (1)
  1. REVLIMID [Suspect]
     Active Substance: LENALIDOMIDE
     Indication: PLASMA CELL MYELOMA
     Dosage: 15-25MG
     Route: 048

REACTIONS (5)
  - Fracture [Unknown]
  - Infection [Unknown]
  - Death [Fatal]
  - Plasma cell myeloma [Unknown]
  - Cardiovascular disorder [Unknown]
